FAERS Safety Report 10874709 (Version 2)
Quarter: 2015Q1

REPORT INFORMATION
  Report Type: Report from Study
  Country: DE (occurrence: DE)
  Receive Date: 20150227
  Receipt Date: 20150323
  Transmission Date: 20150721
  Serious: Yes (Hospitalization)
  Sender: FDA-Public Use
  Company Number: DE-ABBVIE-15P-062-1352381-00

PATIENT
  Sex: Female

DRUGS (2)
  1. LEVODOPA/CARBIDOPA [Suspect]
     Active Substance: CARBIDOPA\LEVODOPA
     Dosage: MD 5.5MLCRD 3.5 ML/HCRN 2 ML/HED 1.5 ML
     Route: 050
     Dates: start: 201502
  2. LEVODOPA/CARBIDOPA [Suspect]
     Active Substance: CARBIDOPA\LEVODOPA
     Indication: PARKINSON^S DISEASE
     Dosage: MD 5.5MLCRD 3.7 ML/HCRN 2 ML/HED 1.5 ML
     Route: 050
     Dates: start: 20100503, end: 201502

REACTIONS (3)
  - Device dislocation [Recovering/Resolving]
  - Stoma complication [Unknown]
  - Hyperkinesia [Recovering/Resolving]
